FAERS Safety Report 7088572-2 (Version None)
Quarter: 2010Q4

REPORT INFORMATION
  Report Type: 
  Country: None (occurrence: None)
  Receive Date: 20101108
  Receipt Date: 20101102
  Transmission Date: 20110411
  Serious: Yes (Death)
  Sender: FDA-Public Use
  Company Number: GB-CELGENEUS-167-50794-10110586

PATIENT
  Age: 68 Year

DRUGS (2)
  1. VIDAZA [Suspect]
     Route: 065
     Dates: start: 20100201, end: 20100901
  2. WHOLE BLOOD [Concomitant]
     Route: 065

REACTIONS (1)
  - DEATH [None]
